FAERS Safety Report 6055104-7 (Version None)
Quarter: 2009Q1

REPORT INFORMATION
  Report Type: 
  Country: None (occurrence: None)
  Receive Date: 20090128
  Receipt Date: 20090121
  Transmission Date: 20090719
  Serious: Yes (Hospitalization)
  Sender: FDA-Public Use
  Company Number: GB-AMGEN-UK328175

PATIENT
  Sex: Male

DRUGS (5)
  1. NEULASTA [Suspect]
     Indication: CHEMOTHERAPY
     Route: 065
     Dates: start: 20090107
  2. RITUXIMAB [Concomitant]
     Route: 065
  3. DEXAMETHASONE [Concomitant]
  4. CYTARABINE [Concomitant]
  5. CISPLATIN [Concomitant]

REACTIONS (2)
  - DRUG INEFFECTIVE [None]
  - VARICELLA [None]
